FAERS Safety Report 5887003-5 (Version None)
Quarter: 2008Q3

REPORT INFORMATION
  Report Type: 
  Country: None (occurrence: None)
  Receive Date: 20080917
  Receipt Date: 20080904
  Transmission Date: 20090109
  Serious: Yes (Hospitalization, Other)
  Sender: FDA-Public Use
  Company Number: JP-ELI_LILLY_AND_COMPANY-JP200809001362

PATIENT
  Age: 33 Year
  Sex: Male

DRUGS (2)
  1. ZYPREXA [Suspect]
     Indication: SCHIZOPHRENIA
     Dosage: 2.5 MG, DAILY (1/D)
     Route: 048
     Dates: start: 20060201, end: 20080711
  2. PAXIL [Concomitant]
     Indication: SCHIZOPHRENIA
     Dosage: 20 MG, DAILY (1/D)
     Route: 048
     Dates: start: 20060201, end: 20080711

REACTIONS (2)
  - HEAT ILLNESS [None]
  - NEUROLEPTIC MALIGNANT SYNDROME [None]
